FAERS Safety Report 4327510-X (Version None)
Quarter: 2004Q1

REPORT INFORMATION
  Report Type: 
  Country: None (occurrence: None)
  Receive Date: 20040329
  Receipt Date: 20040329
  Transmission Date: 20041129
  Serious: Yes (Life-Threatening)
  Sender: FDA-Public Use
  Company Number: None

PATIENT
  Age: 53 Year
  Sex: Male
  Weight: 54 kg

DRUGS (3)
  1. INDOMETHACIN 50MG CAP [Suspect]
     Indication: PALINDROMIC RHEUMATISM
     Dosage: 50 MG TID PO
     Route: 048
     Dates: start: 20040210, end: 20040216
  2. INDOMETHACIN 50MG CAP [Suspect]
     Indication: RHEUMATOID ARTHRITIS
     Dosage: 50 MG TID PO
     Route: 048
     Dates: start: 20040210, end: 20040216
  3. FOSINOPRIL SODIUM [Suspect]
     Indication: HYPERTENSION
     Dosage: 10 MG DAILY PO
     Route: 048
     Dates: start: 20040115, end: 20040216

REACTIONS (5)
  - ANAEMIA [None]
  - BLOOD PRESSURE DECREASED [None]
  - HAEMATEMESIS [None]
  - PEPTIC ULCER [None]
  - RENAL FAILURE ACUTE [None]
